FAERS Safety Report 14249219 (Version 1)
Quarter: 2017Q4

REPORT INFORMATION
  Report Type: Spontaneous
  Country: JP (occurrence: JP)
  Receive Date: 20171204
  Receipt Date: 20171204
  Transmission Date: 20180321
  Serious: Yes (Death, Life-Threatening)
  Sender: FDA-Public Use
  Company Number: PHHY2017JP177424

PATIENT
  Age: 75 Year
  Sex: Female

DRUGS (5)
  1. CYCLOPHOSPHAMIDE. [Suspect]
     Active Substance: CYCLOPHOSPHAMIDE
     Indication: INTERSTITIAL LUNG DISEASE
     Dosage: 10 MG/KG, BOLUS
     Route: 065
  2. NIVOLUMAB [Concomitant]
     Active Substance: NIVOLUMAB
     Indication: SQUAMOUS CELL CARCINOMA OF LUNG
     Dosage: 3 MG/KG, BIW
     Route: 065
  3. METHYLPREDNISOLONE. [Suspect]
     Active Substance: METHYLPREDNISOLONE
     Indication: INTERSTITIAL LUNG DISEASE
     Dosage: BOLUS THERAPY (1 MG/KG/DAY)
     Route: 042
  4. PREDNISOLONE. [Suspect]
     Active Substance: PREDNISOLONE
     Indication: INTERSTITIAL LUNG DISEASE
     Dosage: 1 MG/KG, UNK
     Route: 065
  5. METHYLPREDNISOLONE. [Suspect]
     Active Substance: METHYLPREDNISOLONE
     Route: 042

REACTIONS (3)
  - Drug ineffective [Fatal]
  - Product use in unapproved indication [Unknown]
  - Respiratory failure [Fatal]
